FAERS Safety Report 23335572 (Version 2)
Quarter: 2023Q4

REPORT INFORMATION
  Report Type: Report from Study
  Country: US (occurrence: None)
  Receive Date: 20231225
  Receipt Date: 20231228
  Transmission Date: 20240109
  Serious: Yes (Other)
  Sender: FDA-Public Use
  Company Number: 2023A290692

PATIENT

DRUGS (1)
  1. FARXIGA [Suspect]
     Active Substance: DAPAGLIFLOZIN PROPANEDIOL
     Route: 048

REACTIONS (5)
  - Neoplasm malignant [Recovering/Resolving]
  - Cerebrovascular accident [Recovering/Resolving]
  - Thrombosis [Recovering/Resolving]
  - Asthenia [Recovering/Resolving]
  - Pain in extremity [Unknown]
